FAERS Safety Report 6157754-6 (Version None)
Quarter: 2009Q2

REPORT INFORMATION
  Report Type: 
  Country: None (occurrence: None)
  Receive Date: 20090416
  Receipt Date: 20090409
  Transmission Date: 20091009
  Serious: Yes (Death, Life-Threatening, Hospitalization)
  Sender: FDA-Public Use
  Company Number: FR-MERCK-0805FRA00079

PATIENT
  Age: 64 Year
  Sex: Male
  Weight: 124 kg

DRUGS (4)
  1. VYTORIN [Suspect]
     Indication: HYPERCHOLESTEROLAEMIA
     Route: 048
     Dates: start: 20061113, end: 20080217
  2. BUDESONIDE AND FORMOTEROL FUMARATE [Concomitant]
     Indication: ASTHMA
     Dates: start: 20030101, end: 20080217
  3. ALUMINUM HYDROXIDE AND MAGNESIUM CARBONATE [Concomitant]
     Indication: ABDOMINAL PAIN UPPER
     Route: 048
     Dates: start: 20000101, end: 20080217
  4. ACETAMINOPHEN [Concomitant]
     Indication: HEADACHE
     Route: 048
     Dates: start: 20000101, end: 20080217

REACTIONS (3)
  - CHOLANGITIS [None]
  - METASTASES TO LIVER [None]
  - PANCREATIC CARCINOMA [None]
